FAERS Safety Report 25140951 (Version 1)
Quarter: 2025Q1

REPORT INFORMATION
  Report Type: Spontaneous
  Country: US (occurrence: None)
  Receive Date: 20250331
  Receipt Date: 20250331
  Transmission Date: 20250409
  Serious: No
  Sender: INCYTE
  Company Number: US-EVENT-002178

PATIENT
  Age: 41 Year

DRUGS (2)
  1. JAKAFI [Suspect]
     Active Substance: RUXOLITINIB
     Indication: T-cell prolymphocytic leukaemia
     Dosage: 15 MILLIGRAM, BID
  2. COPIKTRA [Concomitant]
     Active Substance: DUVELISIB
     Indication: T-cell prolymphocytic leukaemia
     Route: 065

REACTIONS (1)
  - Off label use [Unknown]
